FAERS Safety Report 7483095-0 (Version None)
Quarter: 2011Q2

REPORT INFORMATION
  Report Type: 
  Country: None (occurrence: None)
  Receive Date: 20110516
  Receipt Date: 20110513
  Transmission Date: 20111010
  Serious: Yes (Life-Threatening)
  Sender: FDA-Public Use
  Company Number: TR-ABBOTT-11P-161-0724165-00

PATIENT
  Age: 52 Year
  Sex: Male
  Weight: 78 kg

DRUGS (1)
  1. TARKA [Suspect]
     Indication: HYPERTENSION
     Dosage: 180/2 MG X 1
     Route: 048
     Dates: start: 20110413, end: 20110415

REACTIONS (2)
  - SYNCOPE [None]
  - BRAIN NEOPLASM [None]
